FAERS Safety Report 8619128-5 (Version None)
Quarter: 2012Q3

REPORT INFORMATION
  Report Type: 
  Country: None (occurrence: None)
  Receive Date: 20120824
  Receipt Date: 20120822
  Transmission Date: 20120928
  Serious: Yes (Hospitalization)
  Sender: FDA-Public Use
  Company Number: PHHY2012SE072435

PATIENT
  Age: 64 Year
  Sex: Female

DRUGS (3)
  1. METFORMIN HCL [Concomitant]
     Indication: BLOOD PRESSURE ABNORMAL
  2. ALVEDON [Concomitant]
     Dosage: 2 DF PER DAY
     Route: 048
     Dates: start: 20120820
  3. DICLOFENAC POTASSIUM [Suspect]
     Indication: ARTHRALGIA
     Dosage: 25 MG
     Route: 048
     Dates: start: 20120820

REACTIONS (3)
  - DIZZINESS [None]
  - DYSGEUSIA [None]
  - COLD SWEAT [None]
